FAERS Safety Report 8850460 (Version 1)
Quarter: 2012Q4

REPORT INFORMATION
  Report Type: 
  Country: US (occurrence: US)
  Receive Date: 20121019
  Receipt Date: 20121019
  Transmission Date: 20130627
  Serious: Yes (Other)
  Sender: FDA-Public Use
  Company Number: US-PFIZER INC-2012259502

PATIENT
  Age: 57 Year

DRUGS (1)
  1. PRISTIQ [Suspect]
     Indication: DEPRESSION
     Dosage: UNK

REACTIONS (10)
  - Lymphoma [Unknown]
  - Autoimmune thyroiditis [Unknown]
  - Hypertension [Unknown]
  - Hypothyroidism [Unknown]
  - Dizziness [Unknown]
  - Head discomfort [Unknown]
  - Nausea [Unknown]
  - Crying [Unknown]
  - Blood cholesterol increased [Unknown]
  - Blood triglycerides increased [Unknown]
